FAERS Safety Report 22246092 (Version 1)
Quarter: 2023Q2

REPORT INFORMATION
  Report Type: Spontaneous
  Country: CN (occurrence: CN)
  Receive Date: 20230424
  Receipt Date: 20230424
  Transmission Date: 20230722
  Serious: Yes (Other)
  Sender: FDA-Public Use
  Company Number: CN-PFIZER INC-PV202300071915

PATIENT
  Age: 33 Year
  Sex: Male

DRUGS (6)
  1. SOLU-MEDROL [Suspect]
     Active Substance: METHYLPREDNISOLONE SODIUM SUCCINATE
     Indication: Chemotherapy
     Dosage: 80 MG, 1X/DAY
     Route: 041
     Dates: start: 20230410, end: 20230414
  2. SOLU-MEDROL [Suspect]
     Active Substance: METHYLPREDNISOLONE SODIUM SUCCINATE
     Indication: Acute lymphocytic leukaemia
  3. CYCLOPHOSPHAMIDE [Suspect]
     Active Substance: CYCLOPHOSPHAMIDE
     Indication: Chemotherapy
     Dosage: 1.3 G, 1X/DAY
     Route: 041
     Dates: start: 20230411, end: 20230411
  4. CYCLOPHOSPHAMIDE [Suspect]
     Active Substance: CYCLOPHOSPHAMIDE
     Indication: Acute lymphocytic leukaemia
  5. VINDESINE SULFATE [Suspect]
     Active Substance: VINDESINE SULFATE
     Indication: Chemotherapy
     Dosage: 4 MG, 1X/DAY
     Route: 041
     Dates: start: 20230410, end: 20230410
  6. VINDESINE SULFATE [Suspect]
     Active Substance: VINDESINE SULFATE
     Indication: Acute lymphocytic leukaemia

REACTIONS (1)
  - Myelosuppression [Unknown]

NARRATIVE: CASE EVENT DATE: 20230413
